FAERS Safety Report 25360218 (Version 1)
Quarter: 2025Q2

REPORT INFORMATION
  Report Type: Spontaneous
  Country: US (occurrence: US)
  Receive Date: 20250527
  Receipt Date: 20250527
  Transmission Date: 20250717
  Serious: No
  Sender: ACCORD
  Company Number: US-Accord-462149

PATIENT
  Sex: Female

DRUGS (16)
  1. METHOTREXATE [Suspect]
     Active Substance: METHOTREXATE
     Indication: Product used for unknown indication
  2. LEXAPRO [Concomitant]
     Active Substance: ESCITALOPRAM OXALATE
  3. SINGULAIR [Concomitant]
     Active Substance: MONTELUKAST SODIUM
  4. PANTOPRAZOLE SODIUM [Concomitant]
     Active Substance: PANTOPRAZOLE SODIUM
  5. PREDNISONE [Concomitant]
     Active Substance: PREDNISONE
  6. SUCRALFATE [Concomitant]
     Active Substance: SUCRALFATE
  7. VOLTAREN [Concomitant]
     Active Substance: DICLOFENAC SODIUM
  8. TIZANIDINE HYDROCHLORIDE [Concomitant]
     Active Substance: TIZANIDINE HYDROCHLORIDE
  9. POTASSIUM CHLORIDE [Concomitant]
     Active Substance: POTASSIUM CHLORIDE
  10. BETAMETHASONE [Concomitant]
     Active Substance: BETAMETHASONE
  11. MINOXIDIL [Concomitant]
     Active Substance: MINOXIDIL
  12. LORAZEPAM [Concomitant]
     Active Substance: LORAZEPAM
  13. ACYCLOVIR [Concomitant]
     Active Substance: ACYCLOVIR
  14. HYDROCHLOROTHIAZIDE [Concomitant]
     Active Substance: HYDROCHLOROTHIAZIDE
  15. ESTRADIOL [Concomitant]
     Active Substance: ESTRADIOL
  16. FOSFOMYCIN [Concomitant]
     Active Substance: FOSFOMYCIN

REACTIONS (1)
  - Nausea [Unknown]
